FAERS Safety Report 23169176 (Version 1)
Quarter: 2023Q4

REPORT INFORMATION
  Report Type: Spontaneous
  Country: US (occurrence: US)
  Receive Date: 20231110
  Receipt Date: 20231110
  Transmission Date: 20240110
  Serious: Yes (Other)
  Sender: FDA-Public Use
  Company Number: US-drreddys-LIT/USA/23/0183243

PATIENT
  Age: 13 Year
  Sex: Female

DRUGS (6)
  1. SIMVASTATIN [Suspect]
     Active Substance: SIMVASTATIN
     Indication: Nephrotic syndrome
  2. SIMVASTATIN [Suspect]
     Active Substance: SIMVASTATIN
     Indication: Focal segmental glomerulosclerosis
  3. VALSARTAN [Suspect]
     Active Substance: VALSARTAN
     Indication: Nephrotic syndrome
  4. VALSARTAN [Suspect]
     Active Substance: VALSARTAN
     Indication: Focal segmental glomerulosclerosis
  5. PREDNISONE [Suspect]
     Active Substance: PREDNISONE
     Indication: Nephrotic syndrome
  6. PREDNISONE [Suspect]
     Active Substance: PREDNISONE
     Indication: Focal segmental glomerulosclerosis

REACTIONS (1)
  - Drug ineffective for unapproved indication [Unknown]
